FAERS Safety Report 20102060 (Version 2)
Quarter: 2021Q4

REPORT INFORMATION
  Report Type: Other
  Country: AU (occurrence: AU)
  Receive Date: 20211123
  Receipt Date: 20211202
  Transmission Date: 20220303
  Serious: Yes (Death, Hospitalization, Other)
  Sender: FDA-Public Use
  Company Number: AU-ASTELLAS-2021US044489

PATIENT
  Age: 72 Year
  Sex: Male

DRUGS (3)
  1. TACROLIMUS [Suspect]
     Active Substance: TACROLIMUS
     Indication: Product used for unknown indication
     Dosage: UNK UNK, UNKNOWN FREQ.
     Route: 065
  2. METHYLPREDNISOLONE [Suspect]
     Active Substance: METHYLPREDNISOLONE
     Indication: Product used for unknown indication
     Dosage: UNK UNK, UNKNOWN FREQ.
     Route: 065
  3. MYCOPHENOLATE MOFETIL [Suspect]
     Active Substance: MYCOPHENOLATE MOFETIL
     Indication: Product used for unknown indication
     Dosage: UNK UNK, UNKNOWN FREQ.
     Route: 065

REACTIONS (16)
  - Embolism [Fatal]
  - Respiratory failure [Fatal]
  - Shock [Fatal]
  - Infarction [Fatal]
  - Multi-organ disorder [Fatal]
  - Leukopenia [Fatal]
  - Malacoplakia gastrointestinal [Fatal]
  - Pseudopolyposis [Fatal]
  - Aspergillus infection [Fatal]
  - Bacterial colitis [Fatal]
  - Enterococcal infection [Fatal]
  - Escherichia bacteraemia [Fatal]
  - Escherichia sepsis [Fatal]
  - Neutropenic sepsis [Fatal]
  - Pseudomonas infection [Fatal]
  - Septic shock [Fatal]

NARRATIVE: CASE EVENT DATE: 20190101
